FAERS Safety Report 4984776-0 (Version None)
Quarter: 2006Q2

REPORT INFORMATION
  Report Type: 
  Country: None (occurrence: None)
  Receive Date: 20060427
  Receipt Date: 20051205
  Transmission Date: 20061013
  Serious: Yes (Life-Threatening, Hospitalization, Other)
  Sender: FDA-Public Use
  Company Number: US-MERCK-0512USA00636

PATIENT
  Age: 45 Year
  Sex: Female
  Weight: 56 kg

DRUGS (10)
  1. VIOXX [Suspect]
     Indication: OSTEOARTHRITIS
     Route: 048
     Dates: start: 20000122, end: 20040101
  2. REMERON [Concomitant]
     Route: 065
  3. GLUCOTROL [Concomitant]
     Route: 065
  4. PRILOSEC [Concomitant]
     Route: 065
  5. HALCION [Concomitant]
     Route: 065
  6. ATIVAN [Concomitant]
     Route: 065
  7. MS CONTIN [Concomitant]
     Route: 065
  8. AVANDIA [Concomitant]
     Route: 065
  9. PROTONIX [Concomitant]
     Route: 065
  10. PERCOCET [Concomitant]
     Route: 065

REACTIONS (29)
  - ABDOMINAL PAIN [None]
  - ADRENAL INSUFFICIENCY [None]
  - ANAEMIA [None]
  - ARTHRITIS INFECTIVE [None]
  - CARDIAC FAILURE CONGESTIVE [None]
  - CLOSTRIDIUM COLITIS [None]
  - CONVULSION [None]
  - CORONARY ARTERY DISEASE [None]
  - DECUBITUS ULCER [None]
  - DEEP VEIN THROMBOSIS [None]
  - DIABETIC KETOACIDOSIS [None]
  - DIARRHOEA [None]
  - ENTEROCOCCAL INFECTION [None]
  - GASTROENTERITIS [None]
  - GASTROENTERITIS SALMONELLA [None]
  - HAEMOLYTIC ANAEMIA [None]
  - HYPOTENSION [None]
  - INTERSTITIAL LUNG DISEASE [None]
  - MITRAL VALVE INCOMPETENCE [None]
  - MYOCARDIAL INFARCTION [None]
  - OCCULT BLOOD POSITIVE [None]
  - OEDEMA PERIPHERAL [None]
  - OSTEOMYELITIS [None]
  - PNEUMONITIS [None]
  - PYELONEPHRITIS [None]
  - RENAL CYST [None]
  - RESPIRATORY FAILURE [None]
  - SUBCUTANEOUS ABSCESS [None]
  - WOUND [None]
